FAERS Safety Report 8675648 (Version 2)
Quarter: 2013Q4

REPORT INFORMATION
  Report Type: Spontaneous
  Country: IT (occurrence: IT)
  Receive Date: 20120720
  Receipt Date: 20131108
  Transmission Date: 20140711
  Serious: Yes (Hospitalization)
  Sender: FDA-Public Use
  Company Number: IT-009507513-1207ITA000675

PATIENT
  Sex: Female

DRUGS (1)
  1. REBETOL [Suspect]

REACTIONS (1)
  - Interstitial lung disease [Recovered/Resolved]
